FAERS Safety Report 9222486 (Version 1)
Quarter: 2013Q2

REPORT INFORMATION
  Report Type: Spontaneous
  Country: CA (occurrence: CA)
  Receive Date: 20130410
  Receipt Date: 20130410
  Transmission Date: 20140414
  Serious: Yes (Death, Other)
  Sender: FDA-Public Use
  Company Number: CA-NAPPMUNDI-CAN-2013-0003988

PATIENT
  Sex: Male

DRUGS (4)
  1. OXYNEO [Suspect]
     Indication: OSTEOARTHRITIS
  2. OXYNEO [Suspect]
     Indication: PAIN
  3. OXYCONTIN TABLETS [Suspect]
     Indication: OSTEOARTHRITIS
  4. OXYCONTIN TABLETS [Suspect]
     Indication: PAIN

REACTIONS (1)
  - Myocardial infarction [Fatal]
